FAERS Safety Report 6389196-2 (Version None)
Quarter: 2009Q4

REPORT INFORMATION
  Report Type: 
  Country: None (occurrence: None)
  Receive Date: 20091006
  Receipt Date: 20090930
  Transmission Date: 20100525
  Serious: Yes (Other)
  Sender: FDA-Public Use
  Company Number: US-BAYER-200934719NA

PATIENT
  Sex: Female

DRUGS (6)
  1. AVELOX [Suspect]
     Indication: DRUG USE FOR UNKNOWN INDICATION
  2. ALLOPURINOL [Concomitant]
  3. UROCIT [Concomitant]
  4. ZIAC [Concomitant]
  5. ZOLOFT [Concomitant]
  6. AMBIEN [Concomitant]

REACTIONS (3)
  - EXSANGUINATION [None]
  - HYPERSENSITIVITY [None]
  - PLATELET COUNT DECREASED [None]
